FAERS Safety Report 5248846-4 (Version None)
Quarter: 2007Q1

REPORT INFORMATION
  Report Type: 
  Country: None (occurrence: None)
  Receive Date: 20070228
  Receipt Date: 20060307
  Transmission Date: 20070707
  Serious: No
  Sender: FDA-Public Use
  Company Number: US-GLAXOSMITHKLINE-A0597010A

PATIENT

DRUGS (1)
  1. VALTREX [Suspect]
     Indication: IMMUNOSUPPRESSANT DRUG THERAPY
     Dosage: 1G PER DAY
     Route: 048

REACTIONS (3)
  - DRUG INEFFECTIVE [None]
  - HERPES VIRUS INFECTION [None]
  - THERAPEUTIC RESPONSE UNEXPECTED [None]
